FAERS Safety Report 10351291 (Version 1)
Quarter: 2014Q3

REPORT INFORMATION
  Report Type: Spontaneous
  Country: US (occurrence: BR)
  Receive Date: 20140730
  Receipt Date: 20140730
  Transmission Date: 20150326
  Serious: Yes (Hospitalization)
  Sender: FDA-Public Use
  Company Number: BR-FRI-1000069457

PATIENT
  Sex: Male
  Weight: 52 kg

DRUGS (25)
  1. DIOVAN AMLO FIX [Suspect]
     Active Substance: AMLODIPINE\VALSARTAN
     Indication: RENAL FAILURE CHRONIC
  2. SPIRIVA [Suspect]
     Active Substance: TIOTROPIUM BROMIDE MONOHYDRATE
     Indication: CHRONIC OBSTRUCTIVE PULMONARY DISEASE
     Dosage: 1 DF
     Route: 055
  3. ROFLUMILAST [Suspect]
     Active Substance: ROFLUMILAST
     Indication: RENAL FAILURE CHRONIC
  4. PANTOPRAZOLE [Suspect]
     Active Substance: PANTOPRAZOLE SODIUM
     Indication: RENAL FAILURE CHRONIC
  5. APRESOLIN [Suspect]
     Active Substance: HYDRALAZINE HYDROCHLORIDE
     Indication: RENAL FAILURE CHRONIC
     Dosage: 3 DF
     Route: 048
     Dates: start: 2011
  6. DIOVAN [Suspect]
     Active Substance: VALSARTAN
     Indication: RENAL FAILURE CHRONIC
  7. DIOVAN AMLO FIX [Suspect]
     Active Substance: AMLODIPINE\VALSARTAN
     Indication: HYPERTENSION
     Dosage: 1 DF
     Route: 048
     Dates: end: 2011
  8. AMLODIPINE [Suspect]
     Active Substance: AMLODIPINE BESYLATE
     Indication: HYPERTENSION
     Dosage: 2 DF
     Route: 048
     Dates: start: 2011
  9. ENALAPRIL [Suspect]
     Active Substance: ENALAPRIL
     Dosage: 1 DF
  10. FOLIC ACID. [Suspect]
     Active Substance: FOLIC ACID
     Indication: HYPERTENSION
     Dosage: 1 DF
     Route: 048
     Dates: start: 2011
  11. VITAMIN B COMPLEX [Suspect]
     Active Substance: CYANOCOBALAMIN\DEXPANTHENOL\NIACINAMIDE\PYRIDOXINE HYDROCHLORIDE\RIBOFLAVIN 5^-PHOSPHATE SODIUM\THIAMINE HYDROCHLORIDE\VITAMIN B COMPLEX
     Indication: RENAL FAILURE CHRONIC
  12. DIOVAN [Suspect]
     Active Substance: VALSARTAN
     Indication: HYPERTENSION
     Dosage: 2 DF
     Route: 048
     Dates: start: 2011
  13. SINGULAIR [Suspect]
     Active Substance: MONTELUKAST SODIUM
     Indication: HYPERTENSION
     Dosage: 1 DF
     Route: 048
     Dates: start: 2011
  14. DOMPERIDONE [Suspect]
     Active Substance: DOMPERIDONE
     Indication: HYPERTENSION
     Dosage: 2 DF
     Route: 048
  15. OXIMAX [Suspect]
     Active Substance: MOMETASONE FUROATE
     Indication: CHRONIC OBSTRUCTIVE PULMONARY DISEASE
     Dosage: 1 DF
     Route: 055
  16. AMLODIPINE [Suspect]
     Active Substance: AMLODIPINE BESYLATE
     Indication: RENAL FAILURE CHRONIC
  17. PANTOPRAZOLE [Suspect]
     Active Substance: PANTOPRAZOLE SODIUM
     Indication: HYPERTENSION
     Dosage: 40 MG
     Route: 048
     Dates: start: 2011
  18. APRESOLIN [Suspect]
     Active Substance: HYDRALAZINE HYDROCHLORIDE
     Indication: HYPERTENSION
     Dosage: 0.5 DF
     Route: 048
     Dates: start: 2011
  19. VITAMIN B COMPLEX [Suspect]
     Active Substance: CYANOCOBALAMIN\DEXPANTHENOL\NIACINAMIDE\PYRIDOXINE HYDROCHLORIDE\RIBOFLAVIN 5^-PHOSPHATE SODIUM\THIAMINE HYDROCHLORIDE\VITAMIN B COMPLEX
     Indication: HYPERTENSION
     Dosage: 3 DF
     Route: 048
     Dates: start: 2011
  20. ROFLUMILAST [Suspect]
     Active Substance: ROFLUMILAST
     Indication: HYPERTENSION
     Dosage: 1 DF
     Route: 048
     Dates: start: 2011
  21. ONBREZ [Suspect]
     Active Substance: INDACATEROL
     Indication: CHRONIC OBSTRUCTIVE PULMONARY DISEASE
     Dosage: 1 DF
     Route: 055
     Dates: start: 2011
  22. FOLIC ACID. [Suspect]
     Active Substance: FOLIC ACID
     Indication: RENAL FAILURE CHRONIC
  23. ENALAPRIL [Suspect]
     Active Substance: ENALAPRIL
     Dosage: 2 DF
  24. SINGULAIR [Suspect]
     Active Substance: MONTELUKAST SODIUM
     Indication: RENAL FAILURE CHRONIC
  25. DOMPERIDONE [Suspect]
     Active Substance: DOMPERIDONE
     Indication: RENAL FAILURE CHRONIC

REACTIONS (3)
  - Pneumonia [Recovered/Resolved]
  - Hypertension [Recovered/Resolved]
  - Off label use [Not Recovered/Not Resolved]

NARRATIVE: CASE EVENT DATE: 2011
